FAERS Safety Report 13819083 (Version 2)
Quarter: 2017Q3

REPORT INFORMATION
  Report Type: Spontaneous
  Country: US (occurrence: US)
  Receive Date: 20170801
  Receipt Date: 20170913
  Transmission Date: 20171127
  Serious: No
  Sender: FDA-Public Use
  Company Number: US-ASTRAZENECA-2017SE77634

PATIENT
  Age: 26127 Day
  Sex: Female
  Weight: 131.5 kg

DRUGS (1)
  1. BYDUREON [Suspect]
     Active Substance: EXENATIDE
     Indication: TYPE 2 DIABETES MELLITUS
     Route: 058
     Dates: start: 201705

REACTIONS (5)
  - Wrong technique in product usage process [Unknown]
  - Intentional device use issue [Unknown]
  - Underdose [Unknown]
  - Device leakage [Unknown]
  - Arthritis [Unknown]
